FAERS Safety Report 13939289 (Version 2)
Quarter: 2017Q3

REPORT INFORMATION
  Report Type: Spontaneous
  Country: JP (occurrence: JP)
  Receive Date: 20170906
  Receipt Date: 20170912
  Transmission Date: 20171127
  Serious: Yes (Other)
  Sender: FDA-Public Use
  Company Number: JP-UCBSA-2017035020

PATIENT
  Age: 64 Year
  Sex: Male

DRUGS (1)
  1. E KEPPRA [Suspect]
     Active Substance: LEVETIRACETAM
     Indication: SEIZURE
     Dosage: 500 MG, 2X/DAY (BID)
     Route: 041

REACTIONS (3)
  - Renal impairment [Unknown]
  - Off label use [Unknown]
  - Hepatic function abnormal [Unknown]
